FAERS Safety Report 9920567 (Version 1)
Quarter: 2014Q1

REPORT INFORMATION
  Report Type: Spontaneous
  Country: US (occurrence: US)
  Receive Date: 20140224
  Receipt Date: 20140224
  Transmission Date: 20141002
  Serious: No
  Sender: FDA-Public Use
  Company Number: US-NOVEN-13US008414

PATIENT
  Age: 64 Year
  Sex: Female

DRUGS (2)
  1. MINIVELLE [Suspect]
     Indication: HOT FLUSH
     Dosage: 0.1 MG/DAY, UNK
     Route: 062
     Dates: start: 2013, end: 2013
  2. MINIVELLE [Suspect]
     Indication: MIGRAINE
     Dosage: 0.075 MG/DAY, UNK
     Route: 062
     Dates: start: 2013

REACTIONS (5)
  - Palpitations [Recovered/Resolved]
  - Drug effect increased [Recovered/Resolved]
  - Nausea [Recovered/Resolved]
  - Abdominal pain upper [Recovered/Resolved]
  - Hot flush [Recovered/Resolved]
